FAERS Safety Report 6673733-4 (Version None)
Quarter: 2010Q2

REPORT INFORMATION
  Report Type: 
  Country: None (occurrence: None)
  Receive Date: 20100407
  Receipt Date: 20100323
  Transmission Date: 20101027
  Serious: Yes (Death, Other)
  Sender: FDA-Public Use
  Company Number: KADN20100081

PATIENT
  Age: 58 Year
  Sex: Female
  Weight: 66.6788 kg

DRUGS (6)
  1. MORPHINE [Suspect]
     Indication: DRUG USE FOR UNKNOWN INDICATION
     Dates: end: 20080101
  2. ALPRAZOLAM [Suspect]
     Indication: DRUG USE FOR UNKNOWN INDICATION
     Dates: end: 20080101
  3. SECOBARBITAL SODIUM [Suspect]
     Indication: DRUG USE FOR UNKNOWN INDICATION
     Dates: end: 20080101
  4. CARISOPRODOL [Suspect]
     Indication: DRUG USE FOR UNKNOWN INDICATION
     Dates: end: 20080101
  5. CLONAZEPAM [Suspect]
     Indication: DRUG USE FOR UNKNOWN INDICATION
     Dates: end: 20080101
  6. MEPROBAMATE [Suspect]
     Dates: end: 20080101

REACTIONS (3)
  - ACCIDENTAL DEATH [None]
  - DRUG ABUSE [None]
  - DRUG TOXICITY [None]
